FAERS Safety Report 11334030 (Version 1)
Quarter: 2015Q3

REPORT INFORMATION
  Report Type: Spontaneous
  Country: US (occurrence: US)
  Receive Date: 20150803
  Receipt Date: 20150803
  Transmission Date: 20151125
  Serious: Yes (Hospitalization)
  Sender: FDA-Public Use
  Company Number: US-SA-2015SA002940

PATIENT
  Age: 67 Year
  Sex: Female

DRUGS (2)
  1. HYDROMET [Suspect]
     Active Substance: HOMATROPINE METHYLBROMIDE\HYDROCODONE BITARTRATE
     Route: 065
  2. AMBIEN [Suspect]
     Active Substance: ZOLPIDEM TARTRATE
     Route: 065

REACTIONS (6)
  - Delirium [Not Recovered/Not Resolved]
  - Memory impairment [Not Recovered/Not Resolved]
  - Crying [Not Recovered/Not Resolved]
  - Extra dose administered [Unknown]
  - Drug dispensing error [Unknown]
  - Nightmare [Not Recovered/Not Resolved]
